FAERS Safety Report 4881469-5 (Version None)
Quarter: 2005Q4

REPORT INFORMATION
  Report Type: 
  Country: None (occurrence: None)
  Receive Date: 20051209
  Receipt Date: 20050629
  Transmission Date: 20060501
  Serious: Yes (Hospitalization)
  Sender: FDA-Public Use
  Company Number: USA-2005-0020686

PATIENT
  Sex: Female

DRUGS (10)
  1. OXYCONTIN [Suspect]
     Indication: PAIN
     Dosage: 40 MG, BID, UNKNOWN
     Route: 065
     Dates: start: 20050501, end: 20050530
  2. LASIX [Concomitant]
  3. POTASSIUM [Concomitant]
  4. PENICILLIN [Concomitant]
  5. SEPTRA [Concomitant]
  6. CYMBALTA [Concomitant]
  7. TYLENOL (CAPLET) [Concomitant]
  8. WELLBUTRIN [Concomitant]
  9. CLONAPIN [Concomitant]
  10. CRESTOR [Concomitant]

REACTIONS (3)
  - OEDEMA PERIPHERAL [None]
  - SENSORY LOSS [None]
  - STREPTOBACILLUS INFECTION [None]
